FAERS Safety Report 15475639 (Version 1)
Quarter: 2018Q4

REPORT INFORMATION
  Report Type: Spontaneous
  Country: US (occurrence: US)
  Receive Date: 20181008
  Receipt Date: 20181008
  Transmission Date: 20190205
  Serious: No
  Sender: FDA-Public Use
  Company Number: US-PRINSTON PHARMACEUTICAL INC.-2017PRN00527

PATIENT
  Sex: Female
  Weight: 58.96 kg

DRUGS (6)
  1. IRBESARTAN. [Suspect]
     Active Substance: IRBESARTAN
     Indication: BLOOD PRESSURE MEASUREMENT
     Dosage: 75 MG, 1X/DAY AT 9:00AM
     Route: 048
     Dates: start: 201710, end: 2017
  2. IRBESARTAN. [Suspect]
     Active Substance: IRBESARTAN
     Dosage: 75 MG, 1X/DAY AT 9:00PM
     Dates: start: 201711
  3. UNSPECIFIED MULTIVITAMIN [Concomitant]
     Dosage: UNK, 1X/DAY
  4. VITAMIN C [Concomitant]
     Active Substance: ASCORBIC ACID
     Dosage: UNK, 1X/DAY
  5. IRBESARTAN. [Suspect]
     Active Substance: IRBESARTAN
     Dosage: 37.5 MG, 2X/DAY (ONE HALF IN THE MORNING AND ONE HALF AT NIGHT)
     Route: 048
     Dates: start: 2017, end: 2017
  6. VITAMIN E [Concomitant]
     Active Substance: .ALPHA.-TOCOPHEROL
     Dosage: UNK, 1X/DAY

REACTIONS (1)
  - Confusional state [Recovering/Resolving]

NARRATIVE: CASE EVENT DATE: 2017
